FAERS Safety Report 9604762 (Version 1)
Quarter: 2013Q4

REPORT INFORMATION
  Report Type: Spontaneous
  Country: US (occurrence: US)
  Receive Date: 20131008
  Receipt Date: 20131008
  Transmission Date: 20140711
  Serious: Yes (Other)
  Sender: FDA-Public Use
  Company Number: US-PFIZER INC-2013284398

PATIENT
  Age: 56 Year
  Sex: Male
  Weight: 152 kg

DRUGS (2)
  1. FLECTOR [Suspect]
     Dosage: UNK
     Dates: start: 201309
  2. MORPHINE SULFATE [Suspect]
     Dosage: UNK

REACTIONS (8)
  - Weight decreased [Not Recovered/Not Resolved]
  - Haematuria [Not Recovered/Not Resolved]
  - Chills [Not Recovered/Not Resolved]
  - Dyspnoea [Not Recovered/Not Resolved]
  - Urticaria [Not Recovered/Not Resolved]
  - Pyrexia [Not Recovered/Not Resolved]
  - Bladder disorder [Not Recovered/Not Resolved]
  - Malaise [Not Recovered/Not Resolved]
